FAERS Safety Report 5950691-9 (Version None)
Quarter: 2008Q4

REPORT INFORMATION
  Report Type: 
  Country: None (occurrence: None)
  Receive Date: 20081022
  Receipt Date: 20080624
  Transmission Date: 20090506
  Serious: No
  Sender: FDA-Public Use
  Company Number: ALL1-2008-01856

PATIENT
  Age: 6 Year
  Sex: Male

DRUGS (4)
  1. VYVANSE [Suspect]
     Indication: ATTENTION DEFICIT/HYPERACTIVITY DISORDER
     Dosage: 30 MG, 1X/DAY:QD, ORAL ; HALF OF 30 MG CAPSULES DAILY, ORAL
     Route: 048
     Dates: start: 20071201, end: 20080101
  2. VYVANSE [Suspect]
     Indication: ATTENTION DEFICIT/HYPERACTIVITY DISORDER
     Dosage: 30 MG, 1X/DAY:QD, ORAL ; HALF OF 30 MG CAPSULES DAILY, ORAL
     Route: 048
     Dates: start: 20080101
  3. BENADRYL [Concomitant]
  4. NASONEX [Concomitant]

REACTIONS (7)
  - DECREASED APPETITE [None]
  - DRUG EFFECT INCREASED [None]
  - DRUG INEFFECTIVE [None]
  - INCORRECT DOSE ADMINISTERED [None]
  - INCREASED APPETITE [None]
  - PRODUCT QUALITY ISSUE [None]
  - WEIGHT DECREASED [None]
